FAERS Safety Report 15534982 (Version 1)
Quarter: 2018Q4

REPORT INFORMATION
  Report Type: Spontaneous
  Country: US (occurrence: US)
  Receive Date: 20181022
  Receipt Date: 20181022
  Transmission Date: 20190205
  Serious: No
  Sender: FDA-Public Use
  Company Number: US-AUROBINDO-AUR-APL-2018-037940

PATIENT

DRUGS (4)
  1. MULTIVITAMIN                       /00097801/ [Concomitant]
     Active Substance: VITAMINS
     Indication: PRODUCT USED FOR UNKNOWN INDICATION
  2. ALFUZOSIN HYDROCHLORIDE EXTENDED RELEASE [Suspect]
     Active Substance: ALFUZOSIN HYDROCHLORIDE
     Indication: DYSURIA
     Dosage: 10 MILLIGRAM, DAILY
     Route: 048
  3. AMLODIPINE BESYLATE TABLETS 10 MG [Suspect]
     Active Substance: AMLODIPINE BESYLATE
     Indication: BLOOD PRESSURE INCREASED
     Dosage: UNK
  4. LOSARTAN POTASSIUM/HYDROCHLOROTHIAZIDE [Concomitant]
     Active Substance: HYDROCHLOROTHIAZIDE\LOSARTAN POTASSIUM
     Indication: PRODUCT USED FOR UNKNOWN INDICATION

REACTIONS (7)
  - Product design issue [Unknown]
  - Product use complaint [Unknown]
  - Product dose omission [Unknown]
  - Oropharyngeal pain [Not Recovered/Not Resolved]
  - Foreign body in respiratory tract [Unknown]
  - Peripheral swelling [Recovering/Resolving]
  - Lymphadenopathy [Unknown]
